FAERS Safety Report 7378376-5 (Version None)
Quarter: 2011Q1

REPORT INFORMATION
  Report Type: 
  Country: None (occurrence: None)
  Receive Date: 20110328
  Receipt Date: 20110323
  Transmission Date: 20110831
  Serious: Yes (Other)
  Sender: FDA-Public Use
  Company Number: DE-PFIZER INC-2011065225

PATIENT
  Age: 58 Year
  Sex: Female

DRUGS (3)
  1. AZULFIDINE [Suspect]
     Indication: RHEUMATOID ARTHRITIS
     Dosage: 500 MG, 2X/DAY
  2. CORTISONE [Concomitant]
  3. METHOTREXATE SODIUM [Concomitant]

REACTIONS (2)
  - RHEUMATOID ARTHRITIS [None]
  - SURGERY [None]
